FAERS Safety Report 21895291 (Version 3)
Quarter: 2023Q1

REPORT INFORMATION
  Report Type: Report from Study
  Country: JP (occurrence: JP)
  Receive Date: 20230123
  Receipt Date: 20230307
  Transmission Date: 20230417
  Serious: Yes (Death, Hospitalization, Other)
  Sender: FDA-Public Use
  Company Number: JP-DSJP-DSJ-2022-114837

PATIENT
  Age: 63 Year
  Sex: Female

DRUGS (45)
  1. BEVACIZUMAB [Suspect]
     Active Substance: BEVACIZUMAB
     Indication: Colon cancer
     Dosage: 230 MG, IN 2 WEEKS, ONLY 1 DAY ON, FOLLOWED BY 13 DAYS OFF
     Route: 050
     Dates: start: 20220222, end: 20220322
  2. LOXOPROFEN SODIUM [Suspect]
     Active Substance: LOXOPROFEN SODIUM
     Indication: Product used for unknown indication
     Dosage: 180MG/DAY
     Route: 048
     Dates: end: 20220426
  3. OXALIPLATIN [Suspect]
     Active Substance: OXALIPLATIN
     Indication: Colon cancer
     Dosage: 195 MILLIGRAM
     Route: 065
     Dates: start: 20210608
  4. OXALIPLATIN [Suspect]
     Active Substance: OXALIPLATIN
     Dosage: 195 MILLIGRAM
     Route: 065
     Dates: start: 20210629
  5. OXALIPLATIN [Suspect]
     Active Substance: OXALIPLATIN
     Dosage: 195 MILLIGRAM
     Route: 065
     Dates: start: 20210720
  6. OXALIPLATIN [Suspect]
     Active Substance: OXALIPLATIN
     Dosage: 195 MILLIGRAM
     Route: 065
     Dates: start: 20210810
  7. XELODA [Suspect]
     Active Substance: CAPECITABINE
     Indication: Colon cancer
     Dosage: 3000 MG, CYCLE OF CONTINUOUS ADMINISTRATION FOR 2 WEEKS OUT OF 3 WEEKS FOLLOWED BY 1 WEEK OFF
     Route: 048
     Dates: start: 20210608, end: 20210824
  8. IOPAMIDOL [Suspect]
     Active Substance: IOPAMIDOL
     Indication: Product used for unknown indication
     Dosage: UNK
     Route: 065
  9. AVASTIN [Suspect]
     Active Substance: BEVACIZUMAB
     Indication: Product used for unknown indication
     Dosage: 430 MILLIGRAM
     Route: 050
     Dates: start: 20210608, end: 20210608
  10. AVASTIN [Suspect]
     Active Substance: BEVACIZUMAB
     Dosage: 432 MILLIGRAM, 1 DAY OF ADMINISTRATION FOR 3 WEEKS, FOLLOWED BY 20 DAYS OFF
     Route: 050
     Dates: start: 20210629, end: 20210810
  11. AVASTIN [Suspect]
     Active Substance: BEVACIZUMAB
     Dosage: 260 MILLIGRAM, IN 2 WEEKS, ONLY 1 DAY ON, FOLLOWED BY 13 DAYS OFF
     Route: 050
     Dates: start: 20210907, end: 20220208
  12. IRINOTECAN HYDROCHLORIDE [Suspect]
     Active Substance: IRINOTECAN HYDROCHLORIDE
     Indication: Product used for unknown indication
     Dosage: 143 MG, IN 2 WEEKS, ONLY 1 DAY ON, FOLLOWED BY 13 DAYS OFF
     Route: 050
     Dates: start: 20210907, end: 20220208
  13. MIROGABALIN [Suspect]
     Active Substance: MIROGABALIN
     Indication: Product used for unknown indication
     Dosage: UNK
     Route: 065
  14. GIMERACIL\OTERACIL\TEGAFUR [Suspect]
     Active Substance: GIMERACIL\OTERACIL\TEGAFUR
     Indication: Product used for unknown indication
     Dosage: 80 MG, CYCLE OF 14 DAYS ON, THEN 14 DAYS OFF WITHIN 4 WEEKS
     Route: 048
     Dates: start: 20210914, end: 20220207
  15. GIMERACIL\OTERACIL\TEGAFUR [Suspect]
     Active Substance: GIMERACIL\OTERACIL\TEGAFUR
     Dosage: 100MG/DAY
     Route: 048
     Dates: start: 20210907, end: 20210913
  16. GRANISETRON [Concomitant]
     Active Substance: GRANISETRON
     Dosage: 3 MG, 1 DAY OF ADMINISTRATION FOR 3 WEEKS, FOLLOWED BY 20 DAYS OFF
     Route: 050
     Dates: start: 20210608, end: 20210810
  17. DEXAMETHASONE SODIUM PHOSPHATE [Concomitant]
     Active Substance: DEXAMETHASONE SODIUM PHOSPHATE
     Dosage: 9.9 MG, 1 DAY OF ADMINISTRATION FOR 3 WEEKS, FOLLOWED BY 20 DAYS OFF
     Route: 050
     Dates: start: 20210608, end: 20210810
  18. DEXAMETHASONE SODIUM PHOSPHATE [Concomitant]
     Active Substance: DEXAMETHASONE SODIUM PHOSPHATE
     Dosage: 9.9 MG, IN 2 WEEKS, ONLY 1 DAY ON, FOLLOWED BY 13 DAYS OFF
     Route: 050
     Dates: start: 20210907, end: 20220208
  19. MAGNESIUM OXIDE [Concomitant]
     Active Substance: MAGNESIUM OXIDE
     Dosage: 1980MG/DAY
     Route: 048
     Dates: end: 20220426
  20. VONOPRAZAN FUMARATE [Concomitant]
     Active Substance: VONOPRAZAN FUMARATE
     Dosage: 20MG/DAY
     Route: 048
     Dates: end: 20220426
  21. HEPARINOID [Concomitant]
     Dosage: UNK
     Route: 050
     Dates: start: 20210611, end: 20220426
  22. DIFLUPREDNATE [Concomitant]
     Active Substance: DIFLUPREDNATE
     Dosage: UNK UNK, AS NEEDED
     Route: 050
     Dates: start: 20210611, end: 20220426
  23. APREPITANT [Concomitant]
     Active Substance: APREPITANT
     Dosage: 125 MG, ONLY 1 DAY IN 2 WEEKS, FOLLOWED BY 13 DAYS OFF
     Route: 048
     Dates: start: 20210907, end: 20220322
  24. APREPITANT [Concomitant]
     Active Substance: APREPITANT
     Dosage: 80 MG, ONLY 2 DAYS IN 2 WEEKS, FOLLOWED BY 12 DAYS OFF
     Route: 048
     Dates: start: 20210908, end: 20220324
  25. DECADRON [Concomitant]
     Active Substance: DEXAMETHASONE
     Dosage: 2 MILLIGRAM, ONLY 2 DAYS IN 2 WEEKS, FOLLOWED BY 12 DAYS OFF
     Route: 048
     Dates: start: 20210908, end: 20220324
  26. COMIRNATY [Concomitant]
     Active Substance: TOZINAMERAN
     Dosage: 0.3 MILLILITER, QD
     Route: 050
     Dates: start: 20210801, end: 20210801
  27. COMIRNATY [Concomitant]
     Active Substance: TOZINAMERAN
     Dosage: 0.3 MILLILITER, QD
     Route: 050
     Dates: start: 20210822, end: 20210822
  28. ALOXI [Concomitant]
     Active Substance: PALONOSETRON HYDROCHLORIDE
     Dosage: 0.75 MG, IN 2 WEEKS, ONLY 1 DAY ON, FOLLOWED BY 13 DAYS OFF
     Route: 050
     Dates: start: 20210907, end: 20220208
  29. OXYCODONE [Concomitant]
     Active Substance: OXYCODONE
     Dosage: 10MG/DAY
     Route: 048
     Dates: start: 20210608, end: 20210929
  30. OXYCODONE [Concomitant]
     Active Substance: OXYCODONE
     Dosage: 20MG/DAY
     Route: 048
     Dates: start: 20210930, end: 20211117
  31. OXYCODONE [Concomitant]
     Active Substance: OXYCODONE
     Dosage: 30MG/DAY
     Route: 048
     Dates: start: 20211118, end: 20211215
  32. OXYCODONE [Concomitant]
     Active Substance: OXYCODONE
     Dosage: 40MG/DAY
     Route: 048
     Dates: start: 20211216, end: 20220309
  33. OXYCODONE [Concomitant]
     Active Substance: OXYCODONE
     Dosage: 60MG/DAY
     Route: 048
     Dates: start: 20220310, end: 20220426
  34. Oxinorm [Concomitant]
     Dosage: 2.5 MILLIGRAM, AS NECESSARY
     Route: 048
     Dates: start: 20210608, end: 20211117
  35. Oxinorm [Concomitant]
     Dosage: 5 MILLIGRAM, AS NECESSARY
     Route: 048
     Dates: start: 20211118, end: 20220403
  36. Oxinorm [Concomitant]
     Dosage: 10 MILLIGRAM, AS NECESSARY
     Route: 048
     Dates: start: 20220404, end: 20220426
  37. LONSURF [Concomitant]
     Active Substance: TIPIRACIL HYDROCHLORIDE\TRIFLURIDINE
     Dosage: 90 MG, IN 2 WEEKS, ONLY 5 DAYS ON, THEN 9 DAYS OFF
     Route: 048
     Dates: start: 20220222, end: 20220327
  38. LASIX [Concomitant]
     Active Substance: FUROSEMIDE
     Dosage: 20MG/DAY
     Route: 048
     Dates: start: 20220315, end: 20220321
  39. LASIX [Concomitant]
     Active Substance: FUROSEMIDE
     Dosage: 40MG/DAY
     Route: 048
     Dates: start: 20220322, end: 20220403
  40. LASIX [Concomitant]
     Active Substance: FUROSEMIDE
     Dosage: 20MG/DAY
     Route: 048
     Dates: start: 20220404, end: 20220418
  41. LASIX [Concomitant]
     Active Substance: FUROSEMIDE
     Dosage: 40MG/DAY
     Route: 048
     Dates: start: 20220419, end: 20220426
  42. OXYCODONE [Concomitant]
     Active Substance: OXYCODONE
     Dosage: 45MG/DAY
     Route: 050
     Dates: start: 20220426
  43. NAUZELIN [Concomitant]
     Active Substance: DOMPERIDONE
     Dosage: 30MG/DAY
     Route: 048
     Dates: start: 20210608, end: 20210624
  44. CALONAL [Concomitant]
     Active Substance: ACETAMINOPHEN
     Dosage: 500 MG, AS NEEDED
     Route: 048
     Dates: start: 20210607, end: 20210608
  45. SODIUM PICOSULFATE [Concomitant]
     Active Substance: SODIUM PICOSULFATE
     Dosage: 15 DROPS/DAY
     Route: 048
     Dates: start: 20220407, end: 20220426

REACTIONS (7)
  - Neuropathy peripheral [Not Recovered/Not Resolved]
  - Intestinal perforation [Fatal]
  - Oedema [Unknown]
  - Contrast media allergy [Recovered/Resolved]
  - Asteatosis [Recovered/Resolved]
  - Blood pressure increased [Recovered/Resolved]
  - Decreased appetite [Recovered/Resolved]

NARRATIVE: CASE EVENT DATE: 20210622
